FAERS Safety Report 13586139 (Version 1)
Quarter: 2017Q2

REPORT INFORMATION
  Report Type: Spontaneous
  Country: US (occurrence: US)
  Receive Date: 20170526
  Receipt Date: 20170526
  Transmission Date: 20170830
  Serious: No
  Sender: FDA-Public Use
  Company Number: US-PFIZER INC-2017227740

PATIENT
  Sex: Male

DRUGS (1)
  1. VIAGRA [Suspect]
     Active Substance: SILDENAFIL CITRATE

REACTIONS (6)
  - Ejaculation disorder [Unknown]
  - Penile size reduced [Unknown]
  - Anorgasmia [Unknown]
  - Intentional overdose [Unknown]
  - Penile pain [Unknown]
  - Penis disorder [Unknown]
